FAERS Safety Report 12679763 (Version 2)
Quarter: 2016Q3

REPORT INFORMATION
  Report Type: Report from Study
  Country: BR (occurrence: BR)
  Receive Date: 20160824
  Receipt Date: 20160920
  Transmission Date: 20161109
  Serious: Yes (Death, Hospitalization)
  Sender: FDA-Public Use
  Company Number: PHHY2016BR115485

PATIENT
  Age: 69 Year
  Sex: Male
  Weight: 58 kg

DRUGS (2)
  1. EXJADE [Suspect]
     Active Substance: DEFERASIROX
     Indication: MYELODYSPLASTIC SYNDROME
     Dosage: 1000 MG (15 MG/KG), QD
     Route: 048
     Dates: start: 2015
  2. EXJADE [Suspect]
     Active Substance: DEFERASIROX
     Dosage: 1500 MG (25 MG/KG), QD
     Route: 048
     Dates: start: 201608

REACTIONS (8)
  - Serum ferritin increased [Unknown]
  - Platelet count decreased [Unknown]
  - Malaise [Unknown]
  - Haemoglobin decreased [Unknown]
  - Weight decreased [Unknown]
  - Asthenia [Unknown]
  - Death [Fatal]
  - Fatigue [Unknown]

NARRATIVE: CASE EVENT DATE: 201608
